FAERS Safety Report 20064349 (Version 1)
Quarter: 2021Q4

REPORT INFORMATION
  Report Type: Spontaneous
  Country: US (occurrence: US)
  Receive Date: 20211112
  Receipt Date: 20211112
  Transmission Date: 20220303
  Serious: No
  Sender: FDA-Public Use
  Company Number: US-Flexion Therapeutics, Inc.-2020FLS000115

PATIENT
  Age: 72 Year
  Sex: Female

DRUGS (2)
  1. ZILRETTA [Suspect]
     Active Substance: TRIAMCINOLONE ACETONIDE
     Indication: Osteoarthritis
     Dosage: LEFT KNEE
     Route: 014
     Dates: start: 20201204, end: 20201204
  2. TELMISARTAN [Concomitant]
     Active Substance: TELMISARTAN
     Indication: Hypertension

REACTIONS (4)
  - Pseudosepsis [Unknown]
  - Synovial fluid crystal [Unknown]
  - Joint stiffness [Unknown]
  - Gait disturbance [Unknown]

NARRATIVE: CASE EVENT DATE: 20201205
